FAERS Safety Report 5975541-6 (Version None)
Quarter: 2008Q4

REPORT INFORMATION
  Report Type: 
  Country: None (occurrence: None)
  Receive Date: 20081202
  Receipt Date: 20080908
  Transmission Date: 20090506
  Serious: No
  Sender: FDA-Public Use
  Company Number: A0729044A

PATIENT
  Age: 7 Year
  Sex: Female

DRUGS (2)
  1. AUGMENTIN '125' [Suspect]
     Indication: DRUG USE FOR UNKNOWN INDICATION
     Route: 048
     Dates: start: 20080519
  2. NO CONCURRENT MEDICATION [Concomitant]

REACTIONS (3)
  - PRODUCT QUALITY ISSUE [None]
  - RETCHING [None]
  - VOMITING [None]
